FAERS Safety Report 16690169 (Version 8)
Quarter: 2019Q4

REPORT INFORMATION
  Report Type: Report from Study
  Country: US (occurrence: US)
  Receive Date: 20190809
  Receipt Date: 20191230
  Transmission Date: 20200122
  Serious: Yes (Hospitalization, Other)
  Sender: FDA-Public Use
  Company Number: US-ACTELION-A-NJ2019-193491

PATIENT
  Sex: Male
  Weight: 88.44 kg

DRUGS (6)
  1. UPTRAVI [Suspect]
     Active Substance: SELEXIPAG
     Indication: PULMONARY ARTERIAL HYPERTENSION
     Dosage: 800 MCG, BID
     Route: 048
  2. ADEMPAS [Concomitant]
     Active Substance: RIOCIGUAT
  3. UPTRAVI [Suspect]
     Active Substance: SELEXIPAG
     Dosage: 400 MCG, BID
     Route: 048
  4. AMBRISENTAN [Concomitant]
     Active Substance: AMBRISENTAN
  5. LETAIRIS [Concomitant]
     Active Substance: AMBRISENTAN
  6. UPTRAVI [Suspect]
     Active Substance: SELEXIPAG
     Dosage: 600 MCG, BID
     Route: 048

REACTIONS (25)
  - Hypotension [Unknown]
  - Peripheral swelling [Unknown]
  - Joint range of motion decreased [Unknown]
  - Nausea [Not Recovered/Not Resolved]
  - Muscle spasms [Unknown]
  - Muscular weakness [Unknown]
  - Feeling hot [Unknown]
  - Nephrolithiasis [Unknown]
  - Flank pain [Unknown]
  - Flatulence [Unknown]
  - Shoulder arthroplasty [Unknown]
  - Diarrhoea [Unknown]
  - Pain in jaw [Unknown]
  - Weight decreased [Unknown]
  - Vomiting [Unknown]
  - Abdominal pain upper [Not Recovered/Not Resolved]
  - Lithotripsy [Unknown]
  - Malaise [Unknown]
  - Pneumonia [Unknown]
  - Flushing [Unknown]
  - Therapeutic procedure [Unknown]
  - Oedema peripheral [Unknown]
  - Dizziness [Unknown]
  - Dysuria [Unknown]
  - Decreased appetite [Not Recovered/Not Resolved]
